FAERS Safety Report 8600867-7 (Version None)
Quarter: 2012Q3

REPORT INFORMATION
  Report Type: 
  Country: None (occurrence: None)
  Receive Date: 20120817
  Receipt Date: 20080724
  Transmission Date: 20120928
  Serious: Yes (Other)
  Sender: FDA-Public Use
  Company Number: CO-PFIZER INC-2012198688

PATIENT
  Age: 54 Year
  Sex: Female

DRUGS (4)
  1. METOPROLOL [Concomitant]
     Dosage: 100 MG, 2X/DAY
  2. CAPTOPRIL [Concomitant]
     Dosage: 50 MG, 4X/DAY
  3. HYDROCHLOROTHIAZIDE [Concomitant]
     Dosage: 25 MG, ONCE DAILY
  4. LIPITOR [Suspect]
     Dosage: 10 MG, 1X/DAY

REACTIONS (4)
  - LEUKOCYTURIA [None]
  - RENAL FAILURE CHRONIC [None]
  - CHEST PAIN [None]
  - DYSPNOEA EXERTIONAL [None]
